FAERS Safety Report 15463053 (Version 2)
Quarter: 2018Q4

REPORT INFORMATION
  Report Type: Spontaneous
  Country: JP (occurrence: JP)
  Receive Date: 20181004
  Receipt Date: 20181004
  Transmission Date: 20190204
  Serious: Yes (Hospitalization)
  Sender: FDA-Public Use
  Company Number: JP-TEVA-2018-JP-001720J

PATIENT
  Age: 101 Year
  Sex: Male

DRUGS (10)
  1. NIVADIL [Concomitant]
     Active Substance: NILVADIPINE
     Dosage: 8 MILLIGRAM DAILY;
     Route: 048
  2. CONIEL [Concomitant]
     Active Substance: BENIDIPINE HYDROCHLORIDE
     Dosage: 4 MILLIGRAM DAILY;
     Route: 048
  3. BLOPRESS [Concomitant]
     Active Substance: CANDESARTAN CILEXETIL
     Dosage: 8 MILLIGRAM DAILY;
     Route: 048
  4. EURODIN 2MG. TABLETS [Suspect]
     Active Substance: ESTAZOLAM
     Indication: INSOMNIA
     Route: 048
  5. HOKUNALIN:TAPE [Concomitant]
     Active Substance: TULOBUTEROL
     Dosage: 2 MILLIGRAM DAILY;
     Route: 065
  6. MEDICON [Concomitant]
     Active Substance: DEXTROMETHORPHAN HYDROBROMIDE
     Dosage: 90 MILLIGRAM DAILY;
     Route: 048
  7. EURODIN 2MG. TABLETS [Suspect]
     Active Substance: ESTAZOLAM
     Dosage: 6 MILLIGRAM DAILY;
     Route: 048
     Dates: end: 20180524
  8. MUCODYNE [Concomitant]
     Active Substance: CARBOCYSTEINE
     Dosage: 1500 MILLIGRAM DAILY;
     Route: 048
  9. EURODIN 2MG. TABLETS [Suspect]
     Active Substance: ESTAZOLAM
     Dosage: 2 MILLIGRAM DAILY;
     Route: 048
  10. SOLDANA [Concomitant]
     Dosage: 12 MILLIGRAM DAILY;
     Route: 048

REACTIONS (4)
  - Pneumonia [Recovered/Resolved]
  - Cough [Unknown]
  - Drug effect incomplete [Unknown]
  - Product use issue [Unknown]
